FAERS Safety Report 5931282-2 (Version None)
Quarter: 2008Q4

REPORT INFORMATION
  Report Type: 
  Country: None (occurrence: None)
  Receive Date: 20081027
  Receipt Date: 20081017
  Transmission Date: 20090506
  Serious: Yes (Hospitalization)
  Sender: FDA-Public Use
  Company Number: JP-AVENTIS-200813099JP

PATIENT
  Age: 60 Year
  Sex: Female
  Weight: 40 kg

DRUGS (4)
  1. ARAVA [Suspect]
     Indication: RHEUMATOID ARTHRITIS
     Dosage: DOSE: 10 MG
     Route: 048
     Dates: start: 20040114
  2. TRADITIONAL CHINESE MEDICINE (NOS) [Concomitant]
  3. PREDNISOLONE [Concomitant]
     Indication: RHEUMATOID ARTHRITIS
     Route: 048
     Dates: start: 20001220
  4. RIMATIL [Concomitant]
     Indication: RHEUMATOID ARTHRITIS
     Route: 048
     Dates: start: 20001220

REACTIONS (1)
  - LIVER DISORDER [None]
